FAERS Safety Report 6964719-0 (Version None)
Quarter: 2010Q3

REPORT INFORMATION
  Report Type: 
  Country: None (occurrence: None)
  Receive Date: 20100831
  Receipt Date: 20100506
  Transmission Date: 20110219
  Serious: Yes (Life-Threatening)
  Sender: FDA-Public Use
  Company Number: 2010SP045755

PATIENT
  Age: 16 Month
  Sex: Male

DRUGS (5)
  1. NORCURON [Suspect]
     Indication: ANAESTHESIA PROCEDURE
     Dosage: ; IV
     Route: 042
     Dates: start: 20100421, end: 20100421
  2. PROPOFOL [Suspect]
     Indication: ANAESTHESIA PROCEDURE
     Dosage: ; IV
     Route: 042
     Dates: start: 20100421, end: 20100421
  3. AMPICILLIN SODIUM [Concomitant]
  4. AMIKACIN [Concomitant]
  5. CLINDAMYCIN [Concomitant]

REACTIONS (1)
  - OXYGEN SATURATION DECREASED [None]
